FAERS Safety Report 4506817-7 (Version None)
Quarter: 2004Q4

REPORT INFORMATION
  Report Type: 
  Country: None (occurrence: None)
  Receive Date: 20041122
  Receipt Date: 20041110
  Transmission Date: 20050328
  Serious: Yes (Other)
  Sender: FDA-Public Use
  Company Number: GB-GLAXOSMITHKLINE-B0351206A

PATIENT

DRUGS (4)
  1. SEROXAT [Suspect]
     Route: 065
  2. DIAZEPAM [Concomitant]
     Route: 065
  3. SEROQUEL [Concomitant]
     Route: 065
  4. LITHIUM CARBONATE [Concomitant]
     Route: 065

REACTIONS (2)
  - AGGRESSION [None]
  - SUICIDE ATTEMPT [None]
